APPROVED DRUG PRODUCT: TOPAMAX
Active Ingredient: TOPIRAMATE
Strength: 15MG
Dosage Form/Route: CAPSULE;ORAL
Application: N020844 | Product #001 | TE Code: AB
Applicant: JANSSEN PHARMACEUTICALS INC
Approved: Oct 26, 1998 | RLD: Yes | RS: No | Type: RX